FAERS Safety Report 6590004-5 (Version None)
Quarter: 2010Q1

REPORT INFORMATION
  Report Type: 
  Country: None (occurrence: None)
  Receive Date: 20100219
  Receipt Date: 20100209
  Transmission Date: 20100710
  Serious: Yes (Other)
  Sender: FDA-Public Use
  Company Number: PHHY2010BR07421

PATIENT
  Age: 16 Year
  Sex: Female
  Weight: 59 kg

DRUGS (2)
  1. RITALIN [Suspect]
     Indication: ATTENTION DEFICIT/HYPERACTIVITY DISORDER
     Dosage: 10 MG, 1 TABLET DAILY
     Route: 048
     Dates: start: 20090301
  2. TANTIN [Concomitant]
     Indication: CONTRACEPTION
     Dosage: 1 TABLET DAILY
     Route: 048

REACTIONS (1)
  - PLATELET COUNT DECREASED [None]
